FAERS Safety Report 5709301-8 (Version None)
Quarter: 2008Q2

REPORT INFORMATION
  Report Type: 
  Country: None (occurrence: None)
  Receive Date: 20080417
  Receipt Date: 20080417
  Transmission Date: 20081010
  Serious: Yes (Hospitalization)
  Sender: FDA-Public Use
  Company Number: None

PATIENT
  Age: 77 Year
  Sex: Female
  Weight: 68 kg

DRUGS (2)
  1. LOVENOX [Suspect]
     Indication: THROMBOSIS PROPHYLAXIS
     Dosage: 30MG EVERY 12 HOURS SC
     Route: 058
     Dates: start: 20080408, end: 20080412
  2. PLAVIX [Suspect]
     Indication: CAROTID ARTERY DISEASE
     Dosage: 75 MG DAILY PO
     Route: 048
     Dates: end: 20080412

REACTIONS (1)
  - HAEMOGLOBIN DECREASED [None]
